FAERS Safety Report 8700092 (Version 2)
Quarter: 2013Q3

REPORT INFORMATION
  Report Type: Spontaneous
  Country: US (occurrence: US)
  Receive Date: 20120802
  Receipt Date: 20130924
  Transmission Date: 20140515
  Serious: Yes (Other)
  Sender: FDA-Public Use
  Company Number: US-ASTRAZENECA-2012SE51304

PATIENT
  Age: 62 Year
  Sex: Male
  Weight: 95.3 kg

DRUGS (6)
  1. ATACAND [Suspect]
     Indication: BLOOD PRESSURE ABNORMAL
     Route: 048
  2. ATACAND [Suspect]
     Indication: BLOOD PRESSURE ABNORMAL
     Route: 048
  3. ATACAND [Suspect]
     Indication: BLOOD PRESSURE ABNORMAL
     Dosage: GENERIC
     Route: 048
     Dates: start: 2013
  4. NITROGLYCERIN [Concomitant]
     Indication: CARDIAC DISORDER
  5. FISH OIL [Concomitant]
  6. CHROMIUM PICOLINTE [Concomitant]
     Dosage: 200 MG, AFTER MEALS

REACTIONS (18)
  - Cerebrovascular accident [Unknown]
  - Hepatitis C [Unknown]
  - Anxiety [Unknown]
  - Memory impairment [Unknown]
  - Cardiac disorder [Unknown]
  - Arthropathy [Unknown]
  - Blood pressure increased [Unknown]
  - Hypertension [Unknown]
  - Fall [Unknown]
  - Visual impairment [Unknown]
  - Balance disorder [Unknown]
  - Visual impairment [Unknown]
  - Gait disturbance [Unknown]
  - Bacterial infection [Unknown]
  - Blood glucose increased [Unknown]
  - Body height decreased [Unknown]
  - Joint injury [Unknown]
  - Drug ineffective [Unknown]
